FAERS Safety Report 9334983 (Version 1)
Quarter: 2013Q2

REPORT INFORMATION
  Report Type: Spontaneous
  Country: US (occurrence: US)
  Receive Date: 20130606
  Receipt Date: 20130606
  Transmission Date: 20140414
  Serious: No
  Sender: FDA-Public Use
  Company Number: US-AMGEN-USASP2013037219

PATIENT
  Age: 88 Year
  Sex: Male

DRUGS (4)
  1. XGEVA [Suspect]
     Indication: METASTASES TO BONE
     Dosage: 120 MG, Q4WK
     Dates: start: 20110326
  2. LIPITOR [Concomitant]
  3. LISINOPRIL [Concomitant]
  4. FIRMAGON                           /01764801/ [Concomitant]

REACTIONS (1)
  - Inappropriate schedule of drug administration [Unknown]
